FAERS Safety Report 9617803 (Version 1)
Quarter: 2013Q4

REPORT INFORMATION
  Report Type: Spontaneous
  Country: JP (occurrence: None)
  Receive Date: 20131009
  Receipt Date: 20131009
  Transmission Date: 20140711
  Serious: Yes (Hospitalization)
  Sender: FDA-Public Use
  Company Number: FK201304453

PATIENT
  Age: 68 Year
  Sex: Female

DRUGS (1)
  1. IRINOTECAN (IRINOTECAN) [Suspect]
     Indication: ADENOID CYSTIC CARCINOMA

REACTIONS (4)
  - Nausea [None]
  - Anaemia [None]
  - Neutropenia [None]
  - Dermatitis [None]
